FAERS Safety Report 26068368 (Version 1)
Quarter: 2025Q4

REPORT INFORMATION
  Report Type: Spontaneous
  Country: US (occurrence: US)
  Receive Date: 20251120
  Receipt Date: 20251120
  Transmission Date: 20260117
  Serious: No
  Sender: GILEAD
  Company Number: US-GILEAD-2025-0737347

PATIENT
  Age: 60 Year
  Sex: Male

DRUGS (1)
  1. LENACAPAVIR [Suspect]
     Active Substance: LENACAPAVIR
     Indication: HIV infection
     Dosage: 927 MG EVERY 6 MONTHS
     Route: 058
     Dates: start: 202412

REACTIONS (2)
  - Fatigue [Unknown]
  - Vertigo [Unknown]
